FAERS Safety Report 8555453-4 (Version None)
Quarter: 2012Q3

REPORT INFORMATION
  Report Type: 
  Country: None (occurrence: None)
  Receive Date: 20120731
  Receipt Date: 20120106
  Transmission Date: 20120928
  Serious: No
  Sender: FDA-Public Use
  Company Number: US-ASTRAZENECA-2011SE02528

PATIENT
  Age: 56 Year
  Sex: Female
  Weight: 61.2 kg

DRUGS (7)
  1. SEROQUEL XR [Suspect]
     Indication: BIPOLAR DISORDER
     Route: 048
  2. SEROQUEL XR [Suspect]
     Indication: SCHIZOPHRENIA
     Route: 048
  3. SEROQUEL XR [Suspect]
     Route: 048
  4. ATENOLOL [Concomitant]
     Route: 048
  5. SIMVASTATIN [Concomitant]
  6. SEROQUEL XR [Suspect]
     Route: 048
  7. LITHIUM CARBONATE [Concomitant]

REACTIONS (5)
  - COUGH [None]
  - BACK DISORDER [None]
  - HYPERTENSION [None]
  - DEPRESSION [None]
  - DRUG DOSE OMISSION [None]
